FAERS Safety Report 8034399-4 (Version None)
Quarter: 2012Q1

REPORT INFORMATION
  Report Type: 
  Country: None (occurrence: None)
  Receive Date: 20120110
  Receipt Date: 20120105
  Transmission Date: 20120608
  Serious: No
  Sender: FDA-Public Use
  Company Number: US-ELI_LILLY_AND_COMPANY-US201112000328

PATIENT
  Sex: Female

DRUGS (2)
  1. HUMALOG [Suspect]
     Indication: TYPE 1 DIABETES MELLITUS
     Dosage: UNK, OTHER
  2. LANTUS [Concomitant]
     Dosage: UNK

REACTIONS (4)
  - DIABETIC RETINOPATHY [None]
  - CATARACT [None]
  - ANEURYSM [None]
  - OPEN ANGLE GLAUCOMA [None]
